FAERS Safety Report 15186808 (Version 1)
Quarter: 2018Q3

REPORT INFORMATION
  Report Type: Report from Study
  Country: US (occurrence: US)
  Receive Date: 20180723
  Receipt Date: 20180723
  Transmission Date: 20181010
  Serious: No
  Sender: FDA-Public Use
  Company Number: US-EXELIXIS-CABO-18012142

PATIENT
  Age: 77 Year
  Sex: Male

DRUGS (12)
  1. LANTUS [Concomitant]
     Active Substance: INSULIN GLARGINE
  2. PREDNISONE. [Concomitant]
     Active Substance: PREDNISONE
  3. TERAZOSIN [Concomitant]
     Active Substance: TERAZOSIN\TERAZOSIN HYDROCHLORIDE
  4. LEVOTHYROXINE. [Concomitant]
     Active Substance: LEVOTHYROXINE
  5. ALBUTEROL SULFATE. [Concomitant]
     Active Substance: ALBUTEROL SULFATE
  6. ATENOLOL. [Concomitant]
     Active Substance: ATENOLOL
  7. FINASTERIDE. [Concomitant]
     Active Substance: FINASTERIDE
  8. NOVOLOG [Concomitant]
     Active Substance: INSULIN ASPART
  9. CABOMETYX [Suspect]
     Active Substance: CABOZANTINIB S-MALATE
     Dosage: 40 MG, QD
     Route: 048
  10. CABOMETYX [Suspect]
     Active Substance: CABOZANTINIB S-MALATE
     Indication: RENAL CANCER
     Dosage: 60 MG, QD
     Route: 048
     Dates: start: 20171013
  11. VITAMIN D3 [Concomitant]
     Active Substance: CHOLECALCIFEROL
  12. LISINOPRIL. [Concomitant]
     Active Substance: LISINOPRIL

REACTIONS (1)
  - Drug intolerance [Unknown]

NARRATIVE: CASE EVENT DATE: 20180124
